FAERS Safety Report 5932986-8 (Version None)
Quarter: 2008Q4

REPORT INFORMATION
  Report Type: 
  Country: None (occurrence: None)
  Receive Date: 20081027
  Receipt Date: 20081027
  Transmission Date: 20090506
  Serious: No
  Sender: FDA-Public Use
  Company Number: None

PATIENT
  Age: 35 Year
  Sex: Female
  Weight: 72.5755 kg

DRUGS (1)
  1. YAZ [Suspect]
     Indication: CONTRACEPTION
     Dosage: 1 TABLET ONCE A DAY OROPHARINGEAL
     Route: 049
     Dates: start: 20081004, end: 20081020

REACTIONS (2)
  - AGGRESSION [None]
  - VIOLENCE-RELATED SYMPTOM [None]
